FAERS Safety Report 7747910-5 (Version None)
Quarter: 2011Q3

REPORT INFORMATION
  Report Type: 
  Country: None (occurrence: None)
  Receive Date: 20110913
  Receipt Date: 20110803
  Transmission Date: 20111222
  Serious: No
  Sender: FDA-Public Use
  Company Number: US-ALLERGAN-1108896US

PATIENT
  Age: 70 Year
  Sex: Female

DRUGS (6)
  1. LATISSE [Suspect]
     Dosage: 1 GTT, QHS
     Dates: start: 20090101
  2. RESTASIS [Concomitant]
     Dosage: UNK
     Route: 047
  3. RESTASIS [Concomitant]
     Indication: DRY EYE
     Dosage: 1 GTT, QHS
     Route: 047
     Dates: start: 20110301, end: 20110501
  4. OTC EYE OINTMENT [Concomitant]
     Indication: DRY EYE
     Dosage: UNK
     Route: 047
  5. LATISSE [Suspect]
     Indication: GROWTH OF EYELASHES
     Dosage: 2 GTT, BID
     Route: 061
  6. FLUOROMETHOLONE [Concomitant]
     Indication: INFLAMMATION
     Dosage: 1 GTT, UNK
     Dates: start: 20110301

REACTIONS (5)
  - WRONG TECHNIQUE IN DRUG USAGE PROCESS [None]
  - INAPPROPRIATE SCHEDULE OF DRUG ADMINISTRATION [None]
  - DRUG INTERACTION [None]
  - ERYTHEMA [None]
  - TRICHORRHEXIS [None]
